FAERS Safety Report 19268525 (Version 1)
Quarter: 2021Q2

REPORT INFORMATION
  Report Type: Spontaneous
  Country: US (occurrence: US)
  Receive Date: 20210518
  Receipt Date: 20210518
  Transmission Date: 20210717
  Serious: No
  Sender: FDA-Public Use
  Company Number: US-CELLTRION INC.-2021US004058

PATIENT

DRUGS (1)
  1. TRUXIMA [Suspect]
     Active Substance: RITUXIMAB-ABBS
     Indication: OFF LABEL USE
     Dosage: 000 MG WITH A FREQUENCY LISTED OF ^IV 1, 8, 15,
     Route: 042
     Dates: start: 20210325

REACTIONS (1)
  - Off label use [Unknown]
